FAERS Safety Report 12474093 (Version 2)
Quarter: 2016Q3

REPORT INFORMATION
  Report Type: Spontaneous
  Country: ES (occurrence: ES)
  Receive Date: 20160616
  Receipt Date: 20160706
  Transmission Date: 20161109
  Serious: Yes (Other)
  Sender: FDA-Public Use
  Company Number: ES-TAKEDA-2016TUS009717

PATIENT
  Sex: Male

DRUGS (2)
  1. DACORTIN [Suspect]
     Active Substance: PREDNISONE
     Indication: CROHN^S DISEASE
     Dosage: 40 MG, QD
     Dates: start: 20160204, end: 201603
  2. ENTYVIO [Suspect]
     Active Substance: VEDOLIZUMAB
     Indication: CROHN^S DISEASE
     Dosage: 300 MG, UNK
     Route: 042
     Dates: start: 20160204

REACTIONS (3)
  - Ileal stenosis [Unknown]
  - Steroid withdrawal syndrome [Unknown]
  - Pain [Unknown]

NARRATIVE: CASE EVENT DATE: 2016
